FAERS Safety Report 18093442 (Version 1)
Quarter: 2020Q3

REPORT INFORMATION
  Report Type: Spontaneous
  Country: US (occurrence: US)
  Receive Date: 20200730
  Receipt Date: 20200730
  Transmission Date: 20201103
  Serious: No
  Sender: FDA-Public Use
  Company Number: US-GLAXOSMITHKLINE-US2020137868

PATIENT
  Age: 41 Year
  Sex: Female

DRUGS (2)
  1. NICODERM CQ [Suspect]
     Active Substance: NICOTINE
     Indication: SMOKING CESSATION THERAPY
     Dosage: UNK
     Dates: start: 20200714, end: 20200716
  2. NICODERM CQ [Suspect]
     Active Substance: NICOTINE
     Indication: SMOKING CESSATION THERAPY
     Dosage: UNK
     Dates: start: 20200715, end: 20200716

REACTIONS (7)
  - Application site reaction [Recovering/Resolving]
  - Application site erythema [Recovering/Resolving]
  - Drug hypersensitivity [Recovering/Resolving]
  - Application site warmth [Recovering/Resolving]
  - Application site swelling [Recovering/Resolving]
  - Application site pruritus [Recovering/Resolving]
  - Incorrect product administration duration [Unknown]
